FAERS Safety Report 6463763-X (Version None)
Quarter: 2009Q4

REPORT INFORMATION
  Report Type: 
  Country: None (occurrence: None)
  Receive Date: 20091201
  Receipt Date: 20091124
  Transmission Date: 20100525
  Serious: Yes (Death)
  Sender: FDA-Public Use
  Company Number: JP-JNJFOC-20091107081

PATIENT
  Age: 56 Year
  Sex: Female

DRUGS (3)
  1. DUROTEP MT [Suspect]
     Indication: CANCER PAIN
     Route: 062
  2. MS CONTIN [Concomitant]
     Indication: CANCER PAIN
     Route: 048
  3. LOXONIN [Concomitant]
     Indication: ANALGESIC THERAPY
     Route: 048

REACTIONS (2)
  - NAUSEA [None]
  - RECTAL CANCER [None]
